FAERS Safety Report 9186206 (Version 1)
Quarter: 2013Q1

REPORT INFORMATION
  Report Type: Report from Study
  Country: JP (occurrence: JP)
  Receive Date: 20130325
  Receipt Date: 20130325
  Transmission Date: 20140127
  Serious: Yes (Hospitalization, Disabling)
  Sender: FDA-Public Use
  Company Number: JP-GLAXOSMITHKLINE-B0515801A

PATIENT
  Age: 19 Year
  Sex: Male
  Weight: 50 kg

DRUGS (68)
  1. ARRANON [Suspect]
     Indication: T-CELL TYPE ACUTE LEUKAEMIA
     Dosage: 1500MGM2 PER DAY
     Route: 042
     Dates: start: 20080401, end: 20080401
  2. ARRANON [Suspect]
     Indication: T-CELL TYPE ACUTE LEUKAEMIA
     Dosage: 1500MGM2 PER DAY
     Route: 042
     Dates: start: 20080403, end: 20080403
  3. MITOXANTRONE HYDROCHLORIDE [Suspect]
     Indication: NEOPLASM MALIGNANT
     Route: 042
     Dates: start: 20080411, end: 20080417
  4. ETOPOSIDE [Suspect]
     Indication: NEOPLASM MALIGNANT
     Route: 065
     Dates: start: 20080411, end: 20080417
  5. CYTARABINE [Suspect]
     Indication: T-CELL TYPE ACUTE LEUKAEMIA
     Route: 065
     Dates: start: 20080411, end: 20080417
  6. CYTARABINE [Concomitant]
     Indication: NEOPLASM MALIGNANT
     Dates: start: 20070314, end: 20070318
  7. METHOTREXATE [Concomitant]
     Indication: NEOPLASM MALIGNANT
     Dates: start: 20070613, end: 20070613
  8. METHOTREXATE [Concomitant]
     Indication: NEOPLASM MALIGNANT
     Dates: start: 20070619, end: 20070619
  9. METHOTREXATE [Concomitant]
     Indication: NEOPLASM MALIGNANT
     Dates: start: 20070626, end: 20070626
  10. METHOTREXATE [Concomitant]
     Indication: NEOPLASM MALIGNANT
     Dates: start: 20070703, end: 20070703
  11. METHOTREXATE [Concomitant]
     Indication: NEOPLASM MALIGNANT
     Dates: start: 20070720, end: 20070720
  12. METHOTREXATE [Concomitant]
     Indication: NEOPLASM MALIGNANT
     Dates: start: 20070803, end: 20070803
  13. METHOTREXATE [Concomitant]
     Indication: NEOPLASM MALIGNANT
     Dates: start: 20071001, end: 20071001
  14. METHOTREXATE [Concomitant]
     Indication: NEOPLASM MALIGNANT
     Dates: start: 20071026, end: 20071026
  15. METHOTREXATE [Concomitant]
     Indication: NEOPLASM MALIGNANT
     Dates: start: 20071030, end: 20071030
  16. METHOTREXATE [Concomitant]
     Indication: NEOPLASM MALIGNANT
     Dates: start: 20071102, end: 20071102
  17. CYLOCIDE [Concomitant]
     Indication: NEOPLASM MALIGNANT
     Dates: start: 20070613, end: 20070613
  18. CYLOCIDE [Concomitant]
     Indication: NEOPLASM MALIGNANT
     Dates: start: 20070619, end: 20070619
  19. CYLOCIDE [Concomitant]
     Indication: NEOPLASM MALIGNANT
     Dates: start: 20070626, end: 20070626
  20. CYLOCIDE [Concomitant]
     Indication: NEOPLASM MALIGNANT
     Dates: start: 20070703, end: 20070703
  21. CYLOCIDE [Concomitant]
     Indication: NEOPLASM MALIGNANT
     Dates: start: 20070720, end: 20070720
  22. CYLOCIDE [Concomitant]
     Indication: NEOPLASM MALIGNANT
     Dates: start: 20070803, end: 20070803
  23. CYLOCIDE [Concomitant]
     Indication: NEOPLASM MALIGNANT
     Dates: start: 20071001, end: 20071001
  24. CYLOCIDE [Concomitant]
     Indication: NEOPLASM MALIGNANT
     Dates: start: 20071026, end: 20071026
  25. CYLOCIDE [Concomitant]
     Indication: NEOPLASM MALIGNANT
     Dates: start: 20071030, end: 20071030
  26. CYLOCIDE [Concomitant]
     Indication: NEOPLASM MALIGNANT
     Dates: start: 20071102, end: 20071102
  27. DEXART [Concomitant]
     Indication: NEOPLASM MALIGNANT
     Dates: start: 20070613, end: 20070613
  28. DEXART [Concomitant]
     Indication: NEOPLASM MALIGNANT
     Dates: start: 20070619, end: 20070619
  29. DEXART [Concomitant]
     Indication: NEOPLASM MALIGNANT
     Dates: start: 20070626, end: 20070626
  30. DEXART [Concomitant]
     Indication: NEOPLASM MALIGNANT
     Dates: start: 20070703, end: 20070703
  31. DEXART [Concomitant]
     Indication: NEOPLASM MALIGNANT
     Dates: start: 20070720, end: 20070720
  32. DEXART [Concomitant]
     Indication: NEOPLASM MALIGNANT
     Dates: start: 20070803, end: 20070803
  33. DEXART [Concomitant]
     Indication: NEOPLASM MALIGNANT
     Dates: start: 20071001, end: 20071001
  34. DEXART [Concomitant]
     Indication: NEOPLASM MALIGNANT
     Dates: start: 20071026, end: 20071026
  35. DEXART [Concomitant]
     Indication: NEOPLASM MALIGNANT
     Dates: start: 20071030, end: 20071030
  36. DEXART [Concomitant]
     Indication: NEOPLASM MALIGNANT
     Dates: start: 20071102, end: 20071102
  37. DEXART [Concomitant]
     Indication: NEOPLASM MALIGNANT
     Dates: start: 20070725, end: 20070801
  38. ONCOVIN [Concomitant]
     Indication: NEOPLASM MALIGNANT
     Route: 042
     Dates: start: 20070725, end: 20070725
  39. ONCOVIN [Concomitant]
     Indication: NEOPLASM MALIGNANT
     Route: 042
     Dates: start: 20070801, end: 20070801
  40. ONCOVIN [Concomitant]
     Indication: NEOPLASM MALIGNANT
     Route: 042
     Dates: start: 20070808, end: 20070808
  41. ADRIACIN [Concomitant]
     Indication: NEOPLASM MALIGNANT
     Route: 042
     Dates: start: 20070725, end: 20070725
  42. ADRIACIN [Concomitant]
     Indication: NEOPLASM MALIGNANT
     Route: 042
     Dates: start: 20070801, end: 20070801
  43. ADRIACIN [Concomitant]
     Indication: NEOPLASM MALIGNANT
     Route: 042
     Dates: start: 20070808, end: 20070808
  44. DEXART [Concomitant]
     Indication: NEOPLASM MALIGNANT
     Dates: start: 20070725, end: 20070801
  45. KYTRIL [Concomitant]
     Route: 042
     Dates: start: 20080401, end: 20080403
  46. DENOSINE (GANCYCLOVIR) [Concomitant]
     Dates: start: 20080401, end: 20080415
  47. FRAGMIN [Concomitant]
     Indication: DISSEMINATED INTRAVASCULAR COAGULATION
     Route: 042
     Dates: start: 20080401, end: 20080406
  48. ATARAX [Concomitant]
     Dates: start: 20080404, end: 20080404
  49. PREDNISOLONE [Concomitant]
     Route: 042
     Dates: start: 20080401, end: 20080527
  50. PREDNISOLONE [Concomitant]
     Route: 048
     Dates: start: 20080401, end: 20080527
  51. ITRACONAZOLE [Concomitant]
     Route: 048
     Dates: start: 20080401, end: 20080421
  52. FUNGUARD [Concomitant]
     Route: 042
     Dates: start: 20080422, end: 20080428
  53. ITRIZOLE [Concomitant]
     Route: 042
     Dates: start: 20080429, end: 20080504
  54. FLUCONAZOLE [Concomitant]
     Route: 042
     Dates: start: 20080506, end: 20080513
  55. FLUCONAMERCK [Concomitant]
     Route: 048
     Dates: start: 20080514, end: 20080527
  56. BAKTAR [Concomitant]
     Route: 048
     Dates: start: 20080401, end: 20080422
  57. BAKTAR [Concomitant]
     Route: 048
     Dates: start: 20080514, end: 20080527
  58. VENILON [Concomitant]
     Route: 042
     Dates: start: 20080421, end: 20080423
  59. VENILON [Concomitant]
     Route: 042
     Dates: start: 20080515, end: 20080516
  60. MUCOSTA [Concomitant]
     Route: 048
     Dates: start: 20080401, end: 20080421
  61. URSO [Concomitant]
     Route: 048
     Dates: start: 20080401, end: 20080421
  62. TAKEPRON [Concomitant]
     Route: 048
     Dates: start: 20080401, end: 20080421
  63. PANVITAN [Concomitant]
     Route: 048
     Dates: start: 20080401, end: 20080421
  64. ALOSITOL [Concomitant]
     Indication: HYPERURICAEMIA
     Route: 048
     Dates: start: 20080410, end: 20080416
  65. ALLEGRA [Concomitant]
     Route: 048
     Dates: start: 20080411, end: 20080421
  66. ATARAX [Concomitant]
     Route: 048
     Dates: start: 20080418, end: 20080421
  67. BIOFERMIN R [Concomitant]
     Route: 048
     Dates: start: 20080421, end: 20080421
  68. ZANTAC [Concomitant]
     Indication: GASTRITIS
     Dates: start: 20080422, end: 20080429

REACTIONS (10)
  - Hyperbilirubinaemia [Not Recovered/Not Resolved]
  - Muscular weakness [Recovered/Resolved]
  - Hypoaesthesia [Recovered/Resolved]
  - Stomatitis [Recovered/Resolved]
  - Anaemia [Recovering/Resolving]
  - White blood cell count decreased [Recovered/Resolved]
  - Neutropenia [Recovered/Resolved]
  - Platelet count decreased [Not Recovered/Not Resolved]
  - Febrile neutropenia [Recovered/Resolved]
  - Alanine aminotransferase increased [Recovered/Resolved]
